FAERS Safety Report 4968077-2 (Version None)
Quarter: 2006Q2

REPORT INFORMATION
  Report Type: 
  Country: None (occurrence: None)
  Receive Date: 20060410
  Receipt Date: 20060301
  Transmission Date: 20061013
  Serious: Yes (Other)
  Sender: FDA-Public Use
  Company Number: US-ROCHE-438877

PATIENT
  Age: 18 Year
  Sex: Female

DRUGS (4)
  1. ACCUTANE [Suspect]
     Indication: ACNE
     Route: 048
     Dates: start: 20060127
  2. ACCUTANE [Suspect]
     Route: 048
     Dates: start: 20051031, end: 20051128
  3. ACCUTANE [Suspect]
     Route: 048
     Dates: start: 20051129, end: 20060126
  4. BIRTH CONTROL PILL [Concomitant]

REACTIONS (3)
  - DRUG EXPOSURE DURING PREGNANCY [None]
  - NO ADVERSE EFFECT [None]
  - PREGNANCY [None]
